FAERS Safety Report 10054932 (Version 1)
Quarter: 2014Q2

REPORT INFORMATION
  Report Type: Spontaneous
  Country: US (occurrence: US)
  Receive Date: 20140402
  Receipt Date: 20140402
  Transmission Date: 20141212
  Serious: Yes (Other)
  Sender: FDA-Public Use
  Company Number: ALCN2014US002065

PATIENT
  Age: 69 Year
  Sex: Female

DRUGS (2)
  1. TRIESENCE [Suspect]
     Indication: CYSTOID MACULAR OEDEMA
     Dosage: 1 DF, ONCE/SINGLE
     Route: 031
  2. TRIESENCE [Suspect]
     Dosage: 1 UNK, UNK
     Route: 065

REACTIONS (2)
  - Intraocular pressure increased [Recovered/Resolved]
  - Drug ineffective [Unknown]
